FAERS Safety Report 25151861 (Version 1)
Quarter: 2025Q2

REPORT INFORMATION
  Report Type: Spontaneous
  Country: SE (occurrence: SE)
  Receive Date: 20250402
  Receipt Date: 20250402
  Transmission Date: 20250717
  Serious: Yes (Death)
  Sender: AMGEN
  Company Number: SE-AMGEN-SWESP2025060308

PATIENT

DRUGS (1)
  1. TRASTUZUMAB [Suspect]
     Active Substance: TRASTUZUMAB
     Indication: Breast cancer
     Route: 065

REACTIONS (3)
  - Breast cancer [Fatal]
  - Neoplasm malignant [Fatal]
  - Ill-defined disorder [Fatal]
